FAERS Safety Report 15893603 (Version 2)
Quarter: 2019Q1

REPORT INFORMATION
  Report Type: Spontaneous
  Country: US (occurrence: US)
  Receive Date: 20190131
  Receipt Date: 20190322
  Transmission Date: 20190417
  Serious: No
  Sender: FDA-Public Use
  Company Number: US-ASTRAZENECA-2019SE01162

PATIENT
  Age: 72 Year
  Sex: Female
  Weight: 89.8 kg

DRUGS (4)
  1. LOSARTAN. [Concomitant]
     Active Substance: LOSARTAN
     Route: 048
     Dates: start: 2015
  2. SYMBICORT [Suspect]
     Active Substance: BUDESONIDE\FORMOTEROL FUMARATE DIHYDRATE
     Indication: DYSPNOEA
     Dosage: 160/4.5 MCG, ONE PUFF TWICE A DAY
     Route: 055
     Dates: start: 2016
  3. TIMOLOL. [Concomitant]
     Active Substance: TIMOLOL
     Route: 031
     Dates: start: 2005
  4. SYNTHROID [Concomitant]
     Active Substance: LEVOTHYROXINE SODIUM
     Route: 048

REACTIONS (8)
  - Product use in unapproved indication [Unknown]
  - Therapy cessation [Recovered/Resolved]
  - Intentional device misuse [Not Recovered/Not Resolved]
  - Device failure [Unknown]
  - Product storage error [Not Recovered/Not Resolved]
  - Condition aggravated [Not Recovered/Not Resolved]
  - Circumstance or information capable of leading to medication error [Not Recovered/Not Resolved]
  - Off label use [Not Recovered/Not Resolved]

NARRATIVE: CASE EVENT DATE: 2016
